FAERS Safety Report 6593858-1 (Version None)
Quarter: 2010Q1

REPORT INFORMATION
  Report Type: 
  Country: None (occurrence: None)
  Receive Date: 20100222
  Receipt Date: 20100216
  Transmission Date: 20100710
  Serious: Yes (Hospitalization, Other)
  Sender: FDA-Public Use
  Company Number: DE-JNJFOC-20100100930

PATIENT
  Age: 72 Year
  Sex: Female
  Weight: 64 kg

DRUGS (4)
  1. RISPERDAL [Suspect]
     Indication: PSYCHOTIC DISORDER
     Route: 048
     Dates: start: 20091010, end: 20091022
  2. ENALAPRIL MALEATE [Concomitant]
     Indication: HYPERTENSION
     Route: 048
     Dates: start: 20091009
  3. TAVOR [Concomitant]
     Indication: STRESS URINARY INCONTINENCE
     Route: 048
     Dates: start: 20091010
  4. DARIFENACIN [Concomitant]
     Indication: STRESS URINARY INCONTINENCE
     Route: 048
     Dates: start: 20091016

REACTIONS (1)
  - HEPATITIS ACUTE [None]
